FAERS Safety Report 21701716 (Version 1)
Quarter: 2022Q4

REPORT INFORMATION
  Report Type: Report from Study
  Country: TW (occurrence: TW)
  Receive Date: 20221208
  Receipt Date: 20221208
  Transmission Date: 20230112
  Serious: Yes (Hospitalization, Other)
  Sender: FDA-Public Use
  Company Number: TW-TAKEDA-ALL1-2014-00332

PATIENT
  Age: 13 Year
  Sex: Male

DRUGS (6)
  1. IDURSULFASE [Suspect]
     Active Substance: IDURSULFASE
     Indication: Mucopolysaccharidosis II
     Dosage: UNK, UNKNOWN
     Route: 041
  2. GUAIACOL [Concomitant]
     Active Substance: GUAIACOL
     Indication: Respiratory disorder
     Dosage: 5 ML, 3X/DAY:TID
     Route: 048
     Dates: start: 20090327
  3. AMBROXOL [Concomitant]
     Active Substance: AMBROXOL
     Indication: Obstructive airways disorder
     Dosage: 5 ML, 3X/DAY:TID
     Route: 048
     Dates: start: 20090327
  4. AMBROXOL [Concomitant]
     Active Substance: AMBROXOL
     Dosage: 30 MG, UNKNOWN
     Route: 048
     Dates: start: 20090130, end: 20090326
  5. BROCIN [Concomitant]
     Indication: Obstructive airways disorder
     Dosage: 5 ML, 4X/DAY:QID
     Route: 048
     Dates: start: 20040908
  6. Serenal [Concomitant]
     Indication: Sleep disorder
     Dosage: UNK
     Route: 048
     Dates: start: 20040908, end: 20041108

REACTIONS (3)
  - Pneumonia [Recovered/Resolved]
  - Pyrexia [Unknown]
  - Dyspnoea [Unknown]

NARRATIVE: CASE EVENT DATE: 20091014
